FAERS Safety Report 23211318 (Version 2)
Quarter: 2023Q4

REPORT INFORMATION
  Report Type: Spontaneous
  Country: US (occurrence: US)
  Receive Date: 20231121
  Receipt Date: 20231207
  Transmission Date: 20240110
  Serious: Yes (Other)
  Sender: FDA-Public Use
  Company Number: US-VERTEX PHARMACEUTICALS-2023-017451

PATIENT
  Age: 36 Year
  Weight: 73 kg

DRUGS (3)
  1. TRIKAFTA [Suspect]
     Active Substance: ELEXACAFTOR\IVACAFTOR\TEZACAFTOR
     Indication: Cystic fibrosis
     Dosage: ORANGE PILLS IN AM, BLUE PILLS IN PM, EVERY OTHER DAY
     Route: 048
  2. TRIKAFTA [Suspect]
     Active Substance: ELEXACAFTOR\IVACAFTOR\TEZACAFTOR
     Dosage: BLUE PILL IN AM, ORANGE PILL IN PM - EVERY OTHER DAY
     Route: 048
  3. URSODIOL [Concomitant]
     Active Substance: URSODIOL

REACTIONS (5)
  - Cholecystectomy [Recovered/Resolved]
  - Blood triglycerides increased [Recovering/Resolving]
  - Brain fog [Recovering/Resolving]
  - Aphasia [Recovering/Resolving]
  - Depression [Recovering/Resolving]
